FAERS Safety Report 25946447 (Version 1)
Quarter: 2025Q4

REPORT INFORMATION
  Report Type: Other
  Country: SO (occurrence: SO)
  Receive Date: 20251022
  Receipt Date: 20251022
  Transmission Date: 20260117
  Serious: Yes (Death)
  Sender: ANI
  Company Number: SO-ANIPHARMA-030946

PATIENT
  Age: 26 Year
  Sex: Male

DRUGS (1)
  1. FLUCONAZOLE [Suspect]
     Active Substance: FLUCONAZOLE
     Indication: Endocarditis candida

REACTIONS (1)
  - Drug ineffective [Fatal]
